FAERS Safety Report 9111121 (Version 1)
Quarter: 2013Q1

REPORT INFORMATION
  Report Type: Spontaneous
  Country: US (occurrence: US)
  Receive Date: 20130219
  Receipt Date: 20130219
  Transmission Date: 20140127
  Serious: No
  Sender: FDA-Public Use
  Company Number: US-BRISTOL-MYERS SQUIBB COMPANY-16946964

PATIENT
  Age: 47 Year
  Sex: Female
  Weight: 123.81 kg

DRUGS (1)
  1. ORENCIA FOR INJ [Suspect]
     Indication: RHEUMATOID ARTHRITIS
     Dosage: LAST INF:27AUG2012.
     Route: 042
     Dates: start: 20120307

REACTIONS (4)
  - Skin ulcer [Unknown]
  - Respiratory disorder [Unknown]
  - Anxiety [Unknown]
  - Cellulitis [Unknown]
